FAERS Safety Report 7141222-9 (Version None)
Quarter: 2010Q4

REPORT INFORMATION
  Report Type: 
  Country: None (occurrence: None)
  Receive Date: 20101122
  Receipt Date: 20101104
  Transmission Date: 20110411
  Serious: Yes (Other)
  Sender: FDA-Public Use
  Company Number: 1000017303

PATIENT
  Age: 85 Year
  Sex: Female

DRUGS (7)
  1. MEMANTINE HCL [Suspect]
     Indication: DEMENTIA ALZHEIMER'S TYPE
     Dosage: 20 MG (20 MG, 1 IN 1 D),
     Dates: start: 20100627
  2. EXELON [Concomitant]
  3. KARDEGIC 9ACETYLSALICYLATE LYSINE) [Concomitant]
  4. CALCI D3 (CALCIUM, VITAMIN D3) [Concomitant]
  5. OXAZEPAM [Concomitant]
  6. LANSOR (LANSOPRAZOLE) [Concomitant]
  7. SECTRAL [Concomitant]

REACTIONS (7)
  - ABNORMAL BEHAVIOUR [None]
  - DIET REFUSAL [None]
  - ILL-DEFINED DISORDER [None]
  - PERSECUTORY DELUSION [None]
  - REFUSAL OF TREATMENT BY PATIENT [None]
  - REPETITIVE SPEECH [None]
  - RESTLESSNESS [None]
